FAERS Safety Report 5833755-X (Version None)
Quarter: 2008Q3

REPORT INFORMATION
  Report Type: 
  Country: None (occurrence: None)
  Receive Date: 20080804
  Receipt Date: 20080804
  Transmission Date: 20090109
  Serious: Yes (Hospitalization)
  Sender: FDA-Public Use
  Company Number: None

PATIENT
  Age: 82 Year
  Sex: Male
  Weight: 75 kg

DRUGS (1)
  1. DOXAZOSIN MESYLATE [Suspect]
     Indication: URINARY INCONTINENCE
     Dosage: 2 MG EVERY DAY PO
     Route: 048
     Dates: start: 20080208, end: 20080219

REACTIONS (3)
  - DIZZINESS [None]
  - HYPOTENSION [None]
  - URINARY TRACT INFECTION [None]
